FAERS Safety Report 10152572 (Version 2)
Quarter: 2014Q2

REPORT INFORMATION
  Report Type: Spontaneous
  Country: DE (occurrence: DE)
  Receive Date: 20140505
  Receipt Date: 20140528
  Transmission Date: 20141212
  Serious: Yes (Congenital Anomaly)
  Sender: FDA-Public Use
  Company Number: DE-NOVOPROD-407894

PATIENT
  Age: 1 Day
  Sex: Male
  Weight: 3.34 kg

DRUGS (12)
  1. ESTRIFAM [Suspect]
     Indication: INFERTILITY FEMALE
     Dosage: 2 MG, TID
     Route: 064
  2. PRESINOL [Suspect]
     Indication: HYPERTENSION
     Dosage: 375 MG, QD, SINCE 2.5 YEARS
     Route: 064
  3. HYDROCORTISON                      /00028601/ [Concomitant]
     Indication: EMPTY SELLA SYNDROME
     Dosage: 20 MG
     Route: 064
     Dates: start: 1994
  4. HYDROCORTISON                      /00028601/ [Concomitant]
     Dosage: 15 MG, QD
     Route: 064
  5. HYDROCORTISON                      /00028601/ [Concomitant]
     Dosage: 10 MG, QD
     Route: 064
  6. L-THYROXIN [Concomitant]
     Indication: EMPTY SELLA SYNDROME
     Dosage: 150 UG, QD
     Route: 064
     Dates: start: 1994
  7. L-THYROXIN [Concomitant]
     Route: 064
  8. MINIRIN                            /00361901/ [Concomitant]
     Indication: EMPTY SELLA SYNDROME
     Dosage: 30 UG, QD
     Route: 064
     Dates: start: 1994
  9. DEKRISTOL [Concomitant]
     Indication: VITAMIN SUPPLEMENTATION
     Dosage: 20000 IE, EVERY 2 WEEKS
     Route: 064
     Dates: start: 201211
  10. UTROGEST [Concomitant]
     Indication: PROPHYLAXIS OF ABORTION
     Dosage: 600 MG, QD
     Route: 064
  11. UTROGEST [Concomitant]
     Dosage: DOSE REDUCED
     Route: 064
  12. FEMIBION                           /01597501/ [Concomitant]
     Indication: PROPHYLAXIS OF NEURAL TUBE DEFECT
     Dosage: 0.4 MG, QD
     Route: 064

REACTIONS (3)
  - Hypospadias [Not Recovered/Not Resolved]
  - Penile curvature [Not Recovered/Not Resolved]
  - Foetal exposure during pregnancy [Unknown]
